FAERS Safety Report 9191538 (Version 1)
Quarter: 2013Q1

REPORT INFORMATION
  Report Type: Other
  Country: GB (occurrence: GB)
  Receive Date: 20130326
  Receipt Date: 20130326
  Transmission Date: 20140127
  Serious: Yes (Other)
  Sender: FDA-Public Use
  Company Number: GB-WATSON-2013-04991

PATIENT
  Age: 61 Year
  Sex: Female

DRUGS (8)
  1. INDAPAMIDE [Suspect]
     Indication: HYPERTENSION
     Dosage: UNK
     Route: 065
     Dates: start: 20130131
  2. KLIOVANCE [Concomitant]
     Indication: PRODUCT USED FOR UNKNOWN INDICATION
     Dosage: UNK
     Route: 065
     Dates: start: 20121001, end: 20121224
  3. BEZAFIBRATE [Concomitant]
     Indication: PRODUCT USED FOR UNKNOWN INDICATION
     Dosage: UNK
     Route: 065
     Dates: start: 20121119
  4. CANDESARTAN [Concomitant]
     Indication: PRODUCT USED FOR UNKNOWN INDICATION
     Dosage: UNK
     Route: 065
     Dates: start: 20121119
  5. FELODIPINE [Concomitant]
     Indication: PRODUCT USED FOR UNKNOWN INDICATION
     Dosage: UNK
     Route: 065
     Dates: start: 20121119
  6. TRAMADOL [Concomitant]
     Indication: PRODUCT USED FOR UNKNOWN INDICATION
     Dosage: UNK
     Route: 065
     Dates: start: 20121119
  7. ZOPICLONE [Concomitant]
     Indication: ILL-DEFINED DISORDER
     Route: 065
  8. CINNARIZINE [Concomitant]
     Indication: PRODUCT USED FOR UNKNOWN INDICATION
     Dosage: UNK
     Route: 065
     Dates: start: 20130131, end: 20130214

REACTIONS (3)
  - Renal impairment [Recovered/Resolved]
  - Blood potassium decreased [Recovered/Resolved]
  - Renal function test abnormal [Recovered/Resolved]
